FAERS Safety Report 6276445-4 (Version None)
Quarter: 2009Q3

REPORT INFORMATION
  Report Type: 
  Country: None (occurrence: None)
  Receive Date: 20090717
  Receipt Date: 20090717
  Transmission Date: 20100115
  Serious: Yes (Disabling)
  Sender: FDA-Public Use
  Company Number: None

PATIENT
  Age: 60 Year
  Sex: Female
  Weight: 113.3993 kg

DRUGS (1)
  1. SAVELLA [Suspect]
     Dosage: PO
     Route: 048

REACTIONS (2)
  - ABDOMINAL PAIN UPPER [None]
  - HYPERHIDROSIS [None]
